FAERS Safety Report 8909962 (Version 1)
Quarter: 2012Q4

REPORT INFORMATION
  Report Type: Report from Study
  Country: CI (occurrence: CI)
  Receive Date: 20121114
  Receipt Date: 20121114
  Transmission Date: 20130627
  Serious: Yes (Other)
  Sender: FDA-Public Use
  Company Number: CI-GILEAD-2012-0061131

PATIENT
  Age: 29 Year
  Sex: Female

DRUGS (3)
  1. EMTRICITABINE/TENOFOVIR DISOPROXIL FUMARATE [Suspect]
     Indication: HIV INFECTION
     Dosage: 1 DF, QD
     Route: 048
     Dates: start: 20090722
  2. ALUVIA [Concomitant]
     Indication: HIV INFECTION
     Dosage: 1 DF, BID
     Route: 048
     Dates: start: 20101026
  3. EFAVIRENZ [Concomitant]
     Indication: HIV INFECTION
     Dosage: 600 mg, QD
     Route: 048
     Dates: start: 20090722, end: 20101026

REACTIONS (1)
  - Abortion spontaneous [Recovered/Resolved]
